FAERS Safety Report 9504557 (Version 2)
Quarter: 2014Q1

REPORT INFORMATION
  Report Type: Spontaneous
  Country: US (occurrence: US)
  Receive Date: 20130906
  Receipt Date: 20140121
  Transmission Date: 20141002
  Serious: No
  Sender: FDA-Public Use
  Company Number: US-B.I. PHARMACEUTICALS,INC./RIDGEFIELD-2013-BI-26424BP

PATIENT
  Age: 78 Year
  Sex: Female
  Weight: 61 kg

DRUGS (4)
  1. COMBIVENT [Suspect]
     Indication: EMPHYSEMA
     Dosage: STRENGTH: 20 MCG / 100 MCG;
     Route: 055
     Dates: start: 201307
  2. PULMICORT [Concomitant]
     Dosage: 4 PUF
  3. NASONEX NASAL SPRAY [Concomitant]
     Dosage: 1 PUF
  4. SUDAFED [Concomitant]
     Route: 048

REACTIONS (2)
  - Throat tightness [Recovered/Resolved]
  - Product quality issue [Unknown]
